FAERS Safety Report 23035488 (Version 1)
Quarter: 2023Q4

REPORT INFORMATION
  Report Type: Report from Study
  Country: US (occurrence: US)
  Receive Date: 20231006
  Receipt Date: 20231006
  Transmission Date: 20240109
  Serious: Yes (Hospitalization, Other)
  Sender: FDA-Public Use
  Company Number: US-ABBVIE-5398949

PATIENT
  Sex: Female
  Weight: 54.431 kg

DRUGS (2)
  1. HUMIRA [Suspect]
     Active Substance: ADALIMUMAB
     Indication: Rheumatoid arthritis
     Dosage: FORM STRENGTH: 40 MILLIGRAM?CITRATE FREE
     Route: 058
     Dates: start: 20230224
  2. METHOTREXATE [Suspect]
     Active Substance: METHOTREXATE
     Indication: Product used for unknown indication
     Route: 065
     Dates: start: 202204, end: 202309

REACTIONS (3)
  - Uterine leiomyoma [Recovered/Resolved]
  - Liver function test abnormal [Unknown]
  - Intra-uterine contraceptive device insertion [Recovered/Resolved]

NARRATIVE: CASE EVENT DATE: 20230101
